FAERS Safety Report 8734529 (Version 2)
Quarter: 2012Q4

REPORT INFORMATION
  Report Type: Spontaneous
  Country: GB (occurrence: None)
  Receive Date: 20120801
  Receipt Date: 20120827
  Transmission Date: 20130627
  Serious: Yes (Death, Other)
  Sender: FDA-Public Use
  Company Number: APL-2012-00114

PATIENT
  Age: 45 Year
  Sex: Female

DRUGS (5)
  1. PECFENT [Suspect]
     Indication: ANALGESIC THERAPY
     Dosage: 100 UG, UNK 200 UG, UNK; UNKNOWN
  2. DIAMORPHINE (DIAMORPHINE) [Concomitant]
  3. KETAMINE HYDROCHLORIDE [Concomitant]
  4. METOCLOPRAMIDE [Concomitant]
  5. MIDAZOLAM [Concomitant]

REACTIONS (4)
  - General physical health deterioration [None]
  - Neoplasm malignant [None]
  - Condition aggravated [None]
  - Terminal state [None]
